FAERS Safety Report 6600025-1 (Version None)
Quarter: 2010Q1

REPORT INFORMATION
  Report Type: 
  Country: None (occurrence: None)
  Receive Date: 20100224
  Receipt Date: 20100216
  Transmission Date: 20100710
  Serious: Yes (Death, Hospitalization)
  Sender: FDA-Public Use
  Company Number: GB-SANOFI-AVENTIS-2009SA011828

PATIENT
  Age: 16 Year
  Sex: Female
  Weight: 50 kg

DRUGS (13)
  1. MILRINONE [Suspect]
     Indication: MEAN ARTERIAL PRESSURE
     Dosage: 0.4MCG/KG/MIN.
     Route: 065
     Dates: start: 20091130, end: 20091130
  2. MILRINONE [Suspect]
     Indication: PULMONARY HYPERTENSION
     Dosage: 0.4MCG/KG/MIN.
     Route: 065
     Dates: start: 20091130, end: 20091130
  3. ADRENALINE [Suspect]
     Indication: MEAN ARTERIAL PRESSURE
     Dosage: 0.4MCG/KG/MIN
     Route: 065
     Dates: start: 20091130, end: 20091130
  4. ADRENALINE [Suspect]
     Indication: PULMONARY HYPERTENSION
     Dosage: 0.4MCG/KG/MIN
     Route: 065
     Dates: start: 20091130, end: 20091130
  5. DOBUTAMINE [Suspect]
     Indication: VENTRICULAR FAILURE
     Dosage: 5.5MCG/KG/MIN
     Route: 065
     Dates: start: 20091130, end: 20091130
  6. NORADRENALINE [Suspect]
     Indication: VENTRICULAR DYSFUNCTION
     Dosage: 0.3MCG/KG/MIN
     Route: 065
     Dates: start: 20091130, end: 20091130
  7. SILDENAFIL CITRATE [Suspect]
     Indication: PULMONARY HYPERTENSION
     Dosage: 1 MG/HR
     Route: 051
     Dates: start: 20091130, end: 20091130
  8. VASOPRESSIN INJECTION [Suspect]
     Indication: MEAN ARTERIAL PRESSURE
     Dosage: 2.4 I.U/HR.
     Route: 065
     Dates: start: 20091130, end: 20091130
  9. VASOPRESSIN INJECTION [Suspect]
     Indication: PULMONARY HYPERTENSION
     Dosage: 2.4 I.U/HR.
     Route: 065
     Dates: start: 20091130, end: 20091130
  10. NITRIC OXIDE [Suspect]
     Indication: MEAN ARTERIAL PRESSURE
     Route: 055
     Dates: start: 20091130, end: 20091130
  11. NITRIC OXIDE [Suspect]
     Indication: PULMONARY HYPERTENSION
     Route: 055
     Dates: start: 20091130, end: 20091130
  12. GELOFUSINE /AUS/ [Suspect]
     Route: 065
     Dates: start: 20091130, end: 20091130
  13. ALTEPLASE [Concomitant]
     Indication: THROMBOSIS
     Route: 065
     Dates: start: 20091130, end: 20091130

REACTIONS (1)
  - DEATH [None]
